FAERS Safety Report 16076328 (Version 1)
Quarter: 2019Q1

REPORT INFORMATION
  Report Type: Spontaneous
  Country: US (occurrence: US)
  Receive Date: 20190213
  Receipt Date: 20190213
  Transmission Date: 20190418
  Serious: No
  Sender: FDA-Public Use
  Company Number: None

PATIENT
  Age: 63 Year
  Sex: Female
  Weight: 70.85 kg

DRUGS (1)
  1. LEVOTHYROXINE 112MCG [Suspect]
     Active Substance: LEVOTHYROXINE
     Indication: AUTOIMMUNE THYROIDITIS

REACTIONS (2)
  - Blood thyroid stimulating hormone abnormal [None]
  - Product substitution issue [None]

NARRATIVE: CASE EVENT DATE: 20180205
